FAERS Safety Report 5884524-6 (Version None)
Quarter: 2008Q3

REPORT INFORMATION
  Report Type: 
  Country: None (occurrence: None)
  Receive Date: 20080916
  Receipt Date: 20080904
  Transmission Date: 20090109
  Serious: Yes (Other)
  Sender: FDA-Public Use
  Company Number: US-RANBAXY-2008RR-17909

PATIENT

DRUGS (13)
  1. ZIDOVUDINE [Suspect]
     Indication: HIV INFECTION
  2. DIDANOSINE [Suspect]
     Indication: HIV INFECTION
     Dosage: UNK
     Dates: end: 20030101
  3. STAVUDINE [Suspect]
     Indication: HIV INFECTION
     Dosage: UNK
     Dates: end: 20030101
  4. EFAVIRENZ [Suspect]
     Indication: HIV INFECTION
  5. INDINIVIR SULFATE [Suspect]
     Dosage: UNK
     Dates: end: 20030101
  6. NEVIRAPINE [Suspect]
     Indication: HIV INFECTION
  7. ATAZANAVIR [Concomitant]
     Indication: HIV INFECTION
  8. LAMIVUDINE [Concomitant]
     Indication: HIV INFECTION
     Dosage: 300 MG, QD
  9. RITONAVIR [Concomitant]
     Indication: HIV INFECTION
     Dosage: UNK
  10. TENOFOVIR [Concomitant]
     Indication: HIV INFECTION
     Dosage: 300 MG, QD
  11. LOPINAVIR AND RITONAVIR [Concomitant]
     Indication: HIV INFECTION
     Dosage: 750 MG, BID
     Dates: start: 20040201
  12. FOSAMPRENAVIR [Concomitant]
     Indication: HIV INFECTION
     Dosage: 1400 MG, BID
     Dates: start: 20040201
  13. FEXOFENADINE [Concomitant]
     Dosage: 60 MG, PRN

REACTIONS (4)
  - ANAEMIA [None]
  - LIPODYSTROPHY ACQUIRED [None]
  - NEUROPATHY PERIPHERAL [None]
  - RASH [None]
